FAERS Safety Report 13718598 (Version 4)
Quarter: 2017Q4

REPORT INFORMATION
  Report Type: Spontaneous
  Country: CZ (occurrence: CZ)
  Receive Date: 20170705
  Receipt Date: 20171001
  Transmission Date: 20180320
  Serious: Yes (Death, Other)
  Sender: FDA-Public Use
  Company Number: CZ-ALLERGAN-1726568US

PATIENT
  Age: 78 Year
  Sex: Female

DRUGS (3)
  1. CEFTAROLINE FOSAMIL - BP [Suspect]
     Active Substance: CEFTAROLINE FOSAMIL
     Indication: SEPSIS
     Dosage: 600 MG, BID
     Route: 042
     Dates: start: 20161225, end: 20170102
  2. CEFTAROLINE FOSAMIL - BP [Suspect]
     Active Substance: CEFTAROLINE FOSAMIL
     Indication: VARICOSE ULCERATION
  3. CEFTAROLINE FOSAMIL - BP [Suspect]
     Active Substance: CEFTAROLINE FOSAMIL
     Indication: NECROSIS

REACTIONS (5)
  - Death [Fatal]
  - Decreased appetite [Unknown]
  - Drug ineffective [Unknown]
  - Clostridium difficile colitis [Unknown]
  - Nausea [Unknown]
